FAERS Safety Report 24253268 (Version 1)
Quarter: 2024Q3

REPORT INFORMATION
  Report Type: Spontaneous
  Country: FR (occurrence: FR)
  Receive Date: 20240827
  Receipt Date: 20240827
  Transmission Date: 20241016
  Serious: Yes (Hospitalization)
  Sender: SANDOZ
  Company Number: None

PATIENT
  Age: 68 Year
  Sex: Male
  Weight: 59.7 kg

DRUGS (15)
  1. CARBOPLATIN [Suspect]
     Active Substance: CARBOPLATIN
     Dosage: 513.000MG
     Route: 042
     Dates: start: 20240625, end: 20240625
  2. CARBOPLATIN [Suspect]
     Active Substance: CARBOPLATIN
     Dosage: 611.000MG
     Route: 042
     Dates: start: 20240604, end: 20240604
  3. CARBOPLATIN [Suspect]
     Active Substance: CARBOPLATIN
     Dosage: 744.000MG
     Route: 042
     Dates: start: 20240515, end: 20240515
  4. CARBOPLATIN [Suspect]
     Active Substance: CARBOPLATIN
     Dosage: 832.000MG
     Route: 042
     Dates: start: 20240423, end: 20240423
  5. CARBOPLATIN [Suspect]
     Active Substance: CARBOPLATIN
     Indication: Lung adenocarcinoma
     Dosage: 884.000MG
     Route: 042
     Dates: start: 20240402, end: 20240402
  6. KEYTRUDA [Suspect]
     Active Substance: PEMBROLIZUMAB
     Indication: Lung adenocarcinoma
     Dosage: 200.000MG
     Route: 042
     Dates: start: 20240402, end: 20240625
  7. PEMETREXED [Suspect]
     Active Substance: PEMETREXED
     Indication: Lung adenocarcinoma
     Dosage: 100.000MG
     Route: 042
     Dates: start: 20240402, end: 20240402
  8. PEMETREXED [Suspect]
     Active Substance: PEMETREXED
     Dosage: 100.000MG
     Route: 042
     Dates: start: 20240423, end: 20240423
  9. PEMETREXED [Suspect]
     Active Substance: PEMETREXED
     Dosage: 100.000MG
     Route: 042
     Dates: start: 20240515, end: 20240515
  10. PEMETREXED [Suspect]
     Active Substance: PEMETREXED
     Dosage: 842.000MG
     Route: 042
     Dates: start: 20240604, end: 20240604
  11. PEMETREXED [Suspect]
     Active Substance: PEMETREXED
     Dosage: 842.000MG
     Route: 042
     Dates: start: 20240625, end: 20240625
  12. ALLOPURINOL [Concomitant]
     Active Substance: ALLOPURINOL
     Indication: Product used for unknown indication
     Route: 065
  13. EMEND [Concomitant]
     Active Substance: APREPITANT
     Indication: Product used for unknown indication
     Route: 065
  14. LEVOTHYROXINE [Concomitant]
     Active Substance: LEVOTHYROXINE\LEVOTHYROXINE SODIUM
     Indication: Product used for unknown indication
     Route: 065
  15. ONDANSETRON [Concomitant]
     Active Substance: ONDANSETRON
     Indication: Product used for unknown indication
     Route: 065

REACTIONS (2)
  - Intestinal pseudo-obstruction [Recovered/Resolved]
  - Oesophagitis [Not Recovered/Not Resolved]

NARRATIVE: CASE EVENT DATE: 20240708
